FAERS Safety Report 23590826 (Version 1)
Quarter: 2024Q1

REPORT INFORMATION
  Report Type: Spontaneous
  Country: DE (occurrence: DE)
  Receive Date: 20240304
  Receipt Date: 20240304
  Transmission Date: 20240409
  Serious: No
  Sender: FDA-Public Use
  Company Number: DE-AMRYT PHARMACEUTICALS DAC-AEGR006939

PATIENT

DRUGS (15)
  1. METRELEPTIN [Suspect]
     Active Substance: METRELEPTIN
     Indication: Product used for unknown indication
     Dosage: UNK
  2. METFORMIN [Concomitant]
     Active Substance: METFORMIN HYDROCHLORIDE
     Indication: Product used for unknown indication
     Dosage: UNK
  3. METFORMIN [Concomitant]
     Active Substance: METFORMIN HYDROCHLORIDE
     Dosage: HALVED
  4. TOUJEO [Concomitant]
     Active Substance: INSULIN GLARGINE
     Indication: Product used for unknown indication
     Dosage: 57 UNK
  5. TOUJEO [Concomitant]
     Active Substance: INSULIN GLARGINE
     Dosage: 27 UNK
  6. TOUJEO [Concomitant]
     Active Substance: INSULIN GLARGINE
     Dosage: 38 UNK
  7. FIASP [Concomitant]
     Active Substance: INSULIN ASPART
     Indication: Product used for unknown indication
     Dosage: 50-60 UNITS PER DAY, SPREAD OVER 4 DOSES
  8. FIASP [Concomitant]
     Active Substance: INSULIN ASPART
     Dosage: 10-15 UNITS PER DAY, 2-3 DOSES
  9. VICTOZA [Concomitant]
     Active Substance: LIRAGLUTIDE
     Indication: Product used for unknown indication
     Dosage: VICTOZA 1.2 UNK
  10. INSULIN NOS [Concomitant]
     Active Substance: INSULIN NOS
     Indication: Product used for unknown indication
     Dosage: UNK
  11. FENOFIBRATE [Concomitant]
     Active Substance: FENOFIBRATE
     Indication: Product used for unknown indication
     Dosage: FENOFIBRATES 250
  12. METOPROLOL [Concomitant]
     Active Substance: METOPROLOL
     Indication: Product used for unknown indication
     Dosage: UNK
  13. AMLODIPINE\RAMIPRIL [Concomitant]
     Active Substance: AMLODIPINE\RAMIPRIL
     Indication: Product used for unknown indication
     Dosage: UNK
  14. EUTHYROX [Concomitant]
     Active Substance: LEVOTHYROXINE SODIUM
     Indication: Product used for unknown indication
     Dosage: EUTHYROX 125
  15. ASPIRIN [Concomitant]
     Active Substance: ASPIRIN
     Indication: Product used for unknown indication
     Dosage: ASA 100

REACTIONS (7)
  - Gamma-glutamyltransferase increased [Unknown]
  - Blood cholesterol increased [Unknown]
  - High density lipoprotein decreased [Unknown]
  - Non-high-density lipoprotein cholesterol increased [Unknown]
  - Blood glucose increased [Unknown]
  - C-reactive protein increased [Unknown]
  - Blood triglycerides increased [Unknown]

NARRATIVE: CASE EVENT DATE: 20221001
